FAERS Safety Report 25569512 (Version 9)
Quarter: 2025Q4

REPORT INFORMATION
  Report Type: Report from Study
  Country: CA (occurrence: CA)
  Receive Date: 20250716
  Receipt Date: 20251110
  Transmission Date: 20260118
  Serious: Yes (Death, Hospitalization)
  Sender: ABBVIE
  Company Number: CA-ABBVIE-6371476

PATIENT
  Age: 74 Year
  Sex: Female

DRUGS (1)
  1. VYALEV [Suspect]
     Active Substance: FOSCARBIDOPA\FOSLEVODOPA
     Indication: Product used for unknown indication
     Route: 058
     Dates: start: 20250414

REACTIONS (13)
  - Death [Fatal]
  - Craniofacial fracture [Recovered/Resolved]
  - Device defective [Unknown]
  - Drug ineffective [Unknown]
  - Fall [Recovered/Resolved]
  - Haemorrhage [Unknown]
  - Hand fracture [Unknown]
  - Catheter site discharge [Unknown]
  - Catheter site nodule [Unknown]
  - On and off phenomenon [Unknown]
  - Device occlusion [Recovered/Resolved]
  - Device issue [Unknown]
  - Malaise [Unknown]

NARRATIVE: CASE EVENT DATE: 20250101
